FAERS Safety Report 4711956-1 (Version None)
Quarter: 2005Q2

REPORT INFORMATION
  Report Type: 
  Country: None (occurrence: None)
  Receive Date: 20050629
  Receipt Date: 20050308
  Transmission Date: 20051028
  Serious: No
  Sender: FDA-Public Use
  Company Number: 05P-163-0293668-00

PATIENT
  Age: 53 Year
  Sex: Female
  Weight: 66.6788 kg

DRUGS (6)
  1. HUMIRA [Suspect]
     Indication: RHEUMATOID ARTHRITIS
     Dosage: 40 MG, 1 IN 2 WK, SUBCUTANEOUS
     Route: 058
     Dates: start: 20040101, end: 20050304
  2. PREDNISONE [Concomitant]
  3. ESTROGEN [Concomitant]
  4. HYDROCHLOTHIAZIDE [Concomitant]
  5. FOLIC ACID [Concomitant]
  6. VITAMINS [Concomitant]

REACTIONS (2)
  - BRONCHIAL INFECTION [None]
  - COUGH [None]
